FAERS Safety Report 8086758-1 (Version None)
Quarter: 2012Q1

REPORT INFORMATION
  Report Type: 
  Country: None (occurrence: None)
  Receive Date: 20120128
  Receipt Date: 20110613
  Transmission Date: 20120608
  Serious: No
  Sender: FDA-Public Use
  Company Number: US-ABBOTT-11P-163-0731919-00

PATIENT
  Age: 67 Year
  Sex: Male

DRUGS (5)
  1. CALCIUM [Concomitant]
     Indication: MINERAL SUPPLEMENTATION
  2. HUMIRA [Suspect]
     Indication: RHEUMATOID ARTHRITIS
     Dates: start: 20110103
  3. FOLIC ACID [Concomitant]
     Indication: PRODUCT USED FOR UNKNOWN INDICATION
  4. FISH OIL [Concomitant]
     Indication: SUPPLEMENTATION THERAPY
  5. METHOTREXATE [Concomitant]
     Indication: RHEUMATOID ARTHRITIS
     Dosage: 12.5MG/5CC

REACTIONS (4)
  - FAECES DISCOLOURED [None]
  - MELAENA [None]
  - DIZZINESS [None]
  - ABDOMINAL DISCOMFORT [None]
